FAERS Safety Report 5044214-9 (Version None)
Quarter: 2006Q2

REPORT INFORMATION
  Report Type: 
  Country: None (occurrence: None)
  Receive Date: 20060629
  Receipt Date: 20060614
  Transmission Date: 20061013
  Serious: Yes (Other)
  Sender: FDA-Public Use
  Company Number: SPV1-2006-00077

PATIENT
  Sex: Female

DRUGS (1)
  1. CARBATROL [Suspect]
     Dosage: 100 MG

REACTIONS (2)
  - CONVULSION [None]
  - PHARMACEUTICAL PRODUCT COMPLAINT [None]
